FAERS Safety Report 16803859 (Version 1)
Quarter: 2019Q3

REPORT INFORMATION
  Report Type: Report from Study
  Country: EG (occurrence: EG)
  Receive Date: 20190913
  Receipt Date: 20190913
  Transmission Date: 20191005
  Serious: Yes (Other)
  Sender: FDA-Public Use
  Company Number: EG-KADMON PHARMACEUTICALS, LLC-KAD201909-000645

PATIENT
  Age: 51 Year
  Sex: Male

DRUGS (2)
  1. RIBAVIRIN. [Suspect]
     Active Substance: RIBAVIRIN
     Indication: CHRONIC HEPATITIS C
  2. SOFOSBUVIR/DACLATASVIR [Suspect]
     Active Substance: DACLATASVIR\SOFOSBUVIR
     Indication: CHRONIC HEPATITIS C

REACTIONS (1)
  - Hepatitis B reactivation [Unknown]
